FAERS Safety Report 5505112-7 (Version None)
Quarter: 2007Q4

REPORT INFORMATION
  Report Type: 
  Country: None (occurrence: None)
  Receive Date: 20071102
  Receipt Date: 20071031
  Transmission Date: 20080405
  Serious: Yes (Other)
  Sender: FDA-Public Use
  Company Number: US-BRISTOL-MYERS SQUIBB COMPANY-13965157

PATIENT
  Age: 7 Decade
  Sex: Female

DRUGS (1)
  1. DEFINITY [Suspect]
     Indication: STRESS ECHOCARDIOGRAM
     Route: 040

REACTIONS (7)
  - ARRHYTHMIA [None]
  - CHEST DISCOMFORT [None]
  - COMA [None]
  - COUGH [None]
  - EXTRASYSTOLES [None]
  - RESPIRATORY ARREST [None]
  - VISUAL TRACKING TEST ABNORMAL [None]
